FAERS Safety Report 15539660 (Version 1)
Quarter: 2018Q4

REPORT INFORMATION
  Report Type: Spontaneous
  Country: FR (occurrence: FR)
  Receive Date: 20181023
  Receipt Date: 20181023
  Transmission Date: 20190205
  Serious: Yes (Other)
  Sender: FDA-Public Use
  Company Number: FR-SUN PHARMACEUTICAL INDUSTRIES LTD-2018RR-188462

PATIENT

DRUGS (5)
  1. INIPOMP 20 MG, COMPRIME GASTRO-RESISTANT [Concomitant]
     Indication: PROPHYLAXIS AGAINST GASTROINTESTINAL ULCER
     Route: 048
  2. CORTANCYL 20 MG, COMPRIME SECABLE [Concomitant]
     Indication: RHEUMATOID ARTHRITIS
     Route: 048
  3. METOJECT 20 MG/0,4 ML, SOLUTION INJECTABLE EN SERINGUE PREREMPLIE [Concomitant]
     Indication: RHEUMATOID ARTHRITIS
     Route: 058
  4. RISEDRONATE [Suspect]
     Active Substance: RISEDRONATE SODIUM
     Indication: OSTEOPOROSIS
     Route: 048
     Dates: start: 20180829, end: 20180908
  5. CELEBREX 200 MG, GELULE [Concomitant]
     Indication: RHEUMATOID ARTHRITIS
     Route: 048

REACTIONS (5)
  - Accidental overdose [Not Recovered/Not Resolved]
  - Incorrect dose administered [Not Recovered/Not Resolved]
  - Movement disorder [Not Recovered/Not Resolved]
  - Vertigo [Not Recovered/Not Resolved]
  - Memory impairment [Not Recovered/Not Resolved]

NARRATIVE: CASE EVENT DATE: 20180829
